FAERS Safety Report 5807276-4 (Version None)
Quarter: 2008Q3

REPORT INFORMATION
  Report Type: 
  Country: None (occurrence: None)
  Receive Date: 20080711
  Receipt Date: 20080703
  Transmission Date: 20090109
  Serious: Yes (Hospitalization)
  Sender: FDA-Public Use
  Company Number: US-AVENTIS-200617098GDDC

PATIENT
  Age: 54 Year
  Sex: Male
  Weight: 56.8 kg

DRUGS (3)
  1. DOCETAXEL [Suspect]
     Indication: HEAD AND NECK CANCER
     Route: 042
     Dates: start: 20060517, end: 20060621
  2. CETUXIMAB [Suspect]
     Indication: HEAD AND NECK CANCER
     Route: 042
     Dates: start: 20060517, end: 20060621
  3. RADIOTHERAPY [Suspect]
     Indication: HEAD AND NECK CANCER
     Dosage: DOSE: 52 GY TOTAL DOSE TO DATE
     Dates: end: 20060706

REACTIONS (3)
  - DERMATITIS ACNEIFORM [None]
  - MUCOSAL INFLAMMATION [None]
  - PYREXIA [None]
